FAERS Safety Report 10637704 (Version 1)
Quarter: 2014Q4

REPORT INFORMATION
  Report Type: Report from Study
  Country: BR (occurrence: BR)
  Receive Date: 20141208
  Receipt Date: 20141208
  Transmission Date: 20150529
  Serious: Yes (Other)
  Sender: FDA-Public Use
  Company Number: PHHY2014BR158229

PATIENT
  Age: 47 Year
  Sex: Female
  Weight: 46 kg

DRUGS (1)
  1. AFINITOR [Suspect]
     Active Substance: EVEROLIMUS
     Indication: BREAST CANCER
     Dosage: 10 MG, QD ONE CYCLE COMPLETED ON 06 NOV 2014
     Route: 065
     Dates: start: 20130919

REACTIONS (6)
  - Weight decreased [Recovering/Resolving]
  - Malaise [Recovering/Resolving]
  - Blood cholesterol increased [Recovering/Resolving]
  - Diabetes mellitus [Unknown]
  - Dizziness [Recovering/Resolving]
  - Brain neoplasm malignant [Unknown]

NARRATIVE: CASE EVENT DATE: 201401
